FAERS Safety Report 6049512-8 (Version None)
Quarter: 2009Q1

REPORT INFORMATION
  Report Type: 
  Country: None (occurrence: None)
  Receive Date: 20090121
  Receipt Date: 20090110
  Transmission Date: 20090719
  Serious: Yes (Hospitalization, Other)
  Sender: FDA-Public Use
  Company Number: THQ2009A00087

PATIENT

DRUGS (1)
  1. LANSOPRAZOLE [Suspect]
     Dosage: 15 MG
     Route: 048

REACTIONS (5)
  - BARRETT'S OESOPHAGUS [None]
  - CARDIAC DISORDER [None]
  - CHEST PAIN [None]
  - DYSPNOEA [None]
  - HYPERSENSITIVITY [None]
